FAERS Safety Report 7136555-6 (Version None)
Quarter: 2010Q4

REPORT INFORMATION
  Report Type: 
  Country: None (occurrence: None)
  Receive Date: 20101206
  Receipt Date: 20101124
  Transmission Date: 20110411
  Serious: Yes (Other)
  Sender: FDA-Public Use
  Company Number: US-BIOGENIDEC-2005BI011879

PATIENT
  Age: 57 Year
  Sex: Female

DRUGS (10)
  1. AVONEX [Suspect]
     Indication: MULTIPLE SCLEROSIS
     Route: 030
     Dates: start: 20011023
  2. AVONEX [Suspect]
     Route: 030
     Dates: start: 20031101, end: 20050301
  3. AVONEX [Suspect]
     Route: 030
     Dates: start: 20050501
  4. PREMARIN [Concomitant]
  5. LIPITOR [Concomitant]
  6. NICOMIDE [Concomitant]
  7. ALLEGRA [Concomitant]
  8. SYNTHROID [Concomitant]
  9. DETROL [Concomitant]
  10. METROGEL [Concomitant]

REACTIONS (1)
  - ANGIOEDEMA [None]
